APPROVED DRUG PRODUCT: LUPRON DEPOT
Active Ingredient: LEUPROLIDE ACETATE
Strength: 22.5MG
Dosage Form/Route: INJECTABLE;INJECTION
Application: N020517 | Product #001
Applicant: ABBVIE ENDOCRINE INC
Approved: Dec 22, 1995 | RLD: Yes | RS: No | Type: RX